FAERS Safety Report 19881822 (Version 1)
Quarter: 2021Q3

REPORT INFORMATION
  Report Type: Spontaneous
  Country: AT (occurrence: AT)
  Receive Date: 20210925
  Receipt Date: 20210925
  Transmission Date: 20211014
  Serious: Yes (Life-Threatening)
  Sender: FDA-Public Use
  Company Number: NVSC2021AT217509

PATIENT
  Age: 11 Year
  Sex: Male
  Weight: 46.2 kg

DRUGS (1)
  1. METHOTREXATE. [Suspect]
     Active Substance: METHOTREXATE
     Indication: ACUTE LYMPHOCYTIC LEUKAEMIA
     Dosage: 5 G/M2 E.V, IN 24 H
     Route: 065

REACTIONS (3)
  - Leukopenia [Recovered/Resolved]
  - Drug level increased [Recovering/Resolving]
  - Renal failure [Recovered/Resolved]
